FAERS Safety Report 12840603 (Version 2)
Quarter: 2016Q4

REPORT INFORMATION
  Report Type: Spontaneous
  Country: US (occurrence: US)
  Receive Date: 20161012
  Receipt Date: 20161117
  Transmission Date: 20170207
  Serious: No
  Sender: FDA-Public Use
  Company Number: US-PFIZER INC-2016471465

PATIENT
  Age: 31 Year
  Sex: Male

DRUGS (31)
  1. CYTARABINE. [Suspect]
     Active Substance: CYTARABINE
     Indication: ACUTE LYMPHOCYTIC LEUKAEMIA
     Dosage: UNK
     Route: 037
     Dates: start: 20160824, end: 20160914
  2. PEGASPARGASE [Suspect]
     Active Substance: PEGASPARGASE
     Dosage: UNK, CYCLIC (1 IN 1 CYCLICAL)
     Dates: start: 20160515
  3. ATIVAN [Concomitant]
     Active Substance: LORAZEPAM
     Indication: NAUSEA
     Dosage: UNK UNK, AS NEEDED (TAKE 1-2 TABS BY MOUTH EVERY EVERY 6 HOURS AS NEEDED FOR NAUSEA)
     Route: 048
  4. AMBIEN [Concomitant]
     Active Substance: ZOLPIDEM TARTRATE
     Indication: SOMNOLENCE
     Dosage: 10 MG, AS NEEDED
     Route: 048
  5. VINCRISTINE SULFATE. [Suspect]
     Active Substance: VINCRISTINE SULFATE
     Indication: ACUTE LYMPHOCYTIC LEUKAEMIA
     Dosage: UNK, CYCLIC
     Dates: start: 20160824, end: 20160914
  6. METHOTREXATE SODIUM. [Suspect]
     Active Substance: METHOTREXATE SODIUM
     Dosage: UNK, CYCLIC (2 CYCLES )
     Route: 037
     Dates: start: 20160515
  7. ROXICODONE [Concomitant]
     Active Substance: OXYCODONE HYDROCHLORIDE
     Indication: PAIN
     Dosage: UNK UNK, AS NEEDED ((TAKE 1-2 TABS BY MOUTH EVERY 4 HOURS AS NEEDED))
     Route: 048
  8. PEPCID F [Concomitant]
     Dosage: 20 MG, 1X/DAY (1 IN 1 BEDTIME)
     Route: 048
  9. CYTARABINE. [Suspect]
     Active Substance: CYTARABINE
     Dosage: UNK, CYCLIC (CYCLE 1 )
     Dates: start: 20160122
  10. METHOTREXATE SODIUM. [Suspect]
     Active Substance: METHOTREXATE SODIUM
     Dosage: UNK, CYCLIC
     Route: 037
     Dates: start: 20160122
  11. ETOPOSIDE. [Suspect]
     Active Substance: ETOPOSIDE
     Dosage: UNK, CYCLIC (2 CYCLES )
     Dates: start: 20160613
  12. AMBISOME [Concomitant]
     Active Substance: AMPHOTERICIN B
     Dosage: 250 MG, 1X/DAY [AMPHOTERICIN B: 50MG]/[LIPOSOME: 12.5ML] IN DEXTROSE 5% (D5W) 312.5ML IVPB
     Route: 042
  13. OXY.IR [Concomitant]
     Indication: PAIN
     Dosage: UNK UNK, AS NEEDED (TAKE 1-2 TABS BY MOUTH EVERY 4 HOURS AS NEEDED)
     Route: 048
  14. ZOLPIDEM [Concomitant]
     Active Substance: ZOLPIDEM\ZOLPIDEM TARTRATE
     Indication: SEDATIVE THERAPY
     Dosage: 10 MG, AS NEEDED (1 TAB ) (1 IN 1 BEDTIME)
     Route: 048
  15. CYTARABINE. [Suspect]
     Active Substance: CYTARABINE
     Dosage: UNK, CYCLIC (2 CYCLES )
     Dates: start: 20160613
  16. METHOTREXATE SODIUM. [Suspect]
     Active Substance: METHOTREXATE SODIUM
     Dosage: UNK, CYCLIC
     Route: 037
     Dates: start: 20160613
  17. ETOPOSIDE. [Suspect]
     Active Substance: ETOPOSIDE
     Indication: ACUTE LYMPHOCYTIC LEUKAEMIA
     Dosage: UNK UNK, CYCLIC
     Dates: start: 20160824, end: 20160914
  18. PEGASPARGASE [Suspect]
     Active Substance: PEGASPARGASE
     Indication: ACUTE LYMPHOCYTIC LEUKAEMIA
     Dosage: UNK UNK, CYCLIC (CYCLE 2)
     Dates: start: 20160122
  19. ZOVIRAX [Concomitant]
     Active Substance: ACYCLOVIR
     Dosage: 400 MG, 2X/DAY (0.5 TABS BY MOUTH)
     Route: 048
  20. BACITRACIN. [Concomitant]
     Active Substance: BACITRACIN
     Dosage: UNK (500 UNIT/G)
     Route: 061
  21. VINCRISTINE SULFATE. [Suspect]
     Active Substance: VINCRISTINE SULFATE
     Dosage: UNK, CYCLIC
     Dates: start: 20160122
  22. IFOSFAMIDE. [Suspect]
     Active Substance: IFOSFAMIDE
     Indication: ACUTE LYMPHOCYTIC LEUKAEMIA
     Dosage: UNK UNK, CYCLIC
     Dates: start: 20160824, end: 20160914
  23. PEGASPARGASE [Suspect]
     Active Substance: PEGASPARGASE
     Dosage: UNK, CYCLIC (2 CYCLES )
     Dates: start: 20160613
  24. MERCAPTOPURINE. [Suspect]
     Active Substance: MERCAPTOPURINE
     Indication: ACUTE LYMPHOCYTIC LEUKAEMIA
     Dosage: UNK UNK, CYCLIC (CYCLE 2)
     Dates: start: 20160122
  25. BLINATUMOMAB [Suspect]
     Active Substance: BLINATUMOMAB
     Indication: ACUTE LYMPHOCYTIC LEUKAEMIA
     Dosage: UNK
     Dates: start: 20160809, end: 20160824
  26. ZOVIRAX [Concomitant]
     Active Substance: ACYCLOVIR
     Dosage: 400 MG, 1X/DAY (0.5 TABS )
     Route: 048
  27. METHOTREXATE SODIUM. [Suspect]
     Active Substance: METHOTREXATE SODIUM
     Indication: ACUTE LYMPHOCYTIC LEUKAEMIA
     Dosage: UNK, CYCLIC
     Route: 037
     Dates: start: 20160824, end: 20160914
  28. CYTOXAN LYOPHILIZED [Suspect]
     Active Substance: CYCLOPHOSPHAMIDE
     Dosage: UNK UNK, CYCLIC (CYCLE 2)
     Dates: start: 20160122
  29. DAUNORUBICIN [Suspect]
     Active Substance: DAUNORUBICIN
     Indication: ACUTE LYMPHOCYTIC LEUKAEMIA
     Dosage: UNK UNK, CYCLIC (CYCLE 1)
     Dates: start: 20160122
  30. PEPCID [Concomitant]
     Active Substance: FAMOTIDINE
     Dosage: 20 MG, 1X/DAY
     Route: 048
  31. BACTRIM DS [Concomitant]
     Active Substance: SULFAMETHOXAZOLE\TRIMETHOPRIM
     Dosage: 1 DF, 2X/WEEK [SULFAMETHOXAZOLE: 800MG]/[TRIMETHOPRIM: 160MG]
     Route: 048

REACTIONS (1)
  - Neoplasm progression [Unknown]
